FAERS Safety Report 4557064-4 (Version None)
Quarter: 2005Q1

REPORT INFORMATION
  Report Type: 
  Country: None (occurrence: None)
  Receive Date: 20050120
  Receipt Date: 20050112
  Transmission Date: 20050727
  Serious: Yes (Hospitalization)
  Sender: FDA-Public Use
  Company Number: US-GLAXOSMITHKLINE-A0540443A

PATIENT
  Sex: Female

DRUGS (17)
  1. WELLBUTRIN [Suspect]
     Indication: DEPRESSION
     Dosage: 300MG SEE DOSAGE TEXT
     Route: 048
  2. LEXAPRO [Suspect]
  3. ATENOLOL [Concomitant]
  4. AVANDIA [Concomitant]
  5. NEXIUM [Concomitant]
  6. ASPIRIN [Concomitant]
  7. ARICEPT [Concomitant]
  8. NEURONTIN [Concomitant]
  9. MULTIVITAMIN [Concomitant]
  10. MAGNESIUM [Concomitant]
  11. POTASSIUM [Concomitant]
  12. DURAGESIC [Concomitant]
  13. B12 [Concomitant]
  14. HYDROCODONE [Concomitant]
  15. ZOCOR [Concomitant]
  16. DIAZEPAM [Concomitant]
  17. ISOSORBIDE [Concomitant]

REACTIONS (5)
  - BLOOD PRESSURE DECREASED [None]
  - COMA [None]
  - DRUG INEFFECTIVE [None]
  - DRUG INTERACTION [None]
  - MEDICATION ERROR [None]
